FAERS Safety Report 20010808 (Version 2)
Quarter: 2021Q4

REPORT INFORMATION
  Report Type: Spontaneous
  Country: US (occurrence: US)
  Receive Date: 20211028
  Receipt Date: 20211102
  Transmission Date: 20220303
  Serious: Yes (Life-Threatening, Hospitalization)
  Sender: FDA-Public Use
  Company Number: US-TEVA-2021-US-1968792

PATIENT
  Age: 32 Year
  Sex: Female

DRUGS (2)
  1. METHYLPREDNISOLONE [Suspect]
     Active Substance: METHYLPREDNISOLONE
     Indication: Drug therapy
     Route: 042
  2. RITUXIMAB [Suspect]
     Active Substance: RITUXIMAB
     Indication: Rheumatoid arthritis
     Dosage: 8.3333 MILLIGRAM DAILY; A TOTAL OF 3 TREATMENTS WERE GIVEN
     Route: 065

REACTIONS (5)
  - Dysphagia [Recovering/Resolving]
  - Enterovirus infection [Recovering/Resolving]
  - Encephalitis [Recovering/Resolving]
  - Acute flaccid myelitis [Recovering/Resolving]
  - Condition aggravated [Recovering/Resolving]
